FAERS Safety Report 4376346-2 (Version None)
Quarter: 2004Q2

REPORT INFORMATION
  Report Type: 
  Country: None (occurrence: None)
  Receive Date: 20040612
  Receipt Date: 20040527
  Transmission Date: 20050107
  Serious: Yes (Hospitalization)
  Sender: FDA-Public Use
  Company Number: JP-JNJFOC-20040102505

PATIENT
  Sex: Female
  Weight: 41.4 kg

DRUGS (16)
  1. REMICADE [Suspect]
     Route: 041
  2. REMICADE [Suspect]
     Route: 041
  3. REMICADE [Suspect]
     Indication: RHEUMATOID ARTHRITIS
     Route: 041
  4. METHOTREXATE [Concomitant]
     Route: 065
     Dates: start: 20030813, end: 20031210
  5. INH [Concomitant]
     Indication: PROPHYLAXIS
     Route: 065
     Dates: start: 20030930, end: 20031209
  6. PREDONINE [Concomitant]
     Indication: RHEUMATOID ARTHRITIS
     Route: 049
  7. LOXONIN [Concomitant]
     Indication: RHEUMATOID ARTHRITIS
     Route: 065
  8. CYANOCOBALAMIN [Concomitant]
     Route: 049
  9. AMLODIPINE [Concomitant]
     Route: 049
  10. DIART [Concomitant]
     Route: 049
  11. ALLOPURINOL TAB [Concomitant]
     Route: 049
  12. ULGUT [Concomitant]
     Route: 049
  13. PURSENNID [Concomitant]
     Route: 049
  14. DIFLUCAN [Concomitant]
     Route: 049
  15. TAKEPRON [Concomitant]
     Route: 049
  16. GLYBURIDE [Concomitant]
     Route: 049

REACTIONS (3)
  - CALCULUS URETERIC [None]
  - HYDRONEPHROSIS [None]
  - RENAL INJURY [None]
